FAERS Safety Report 10013881 (Version 2)
Quarter: 2014Q1

REPORT INFORMATION
  Report Type: Spontaneous
  Country: US (occurrence: US)
  Receive Date: 20140316
  Receipt Date: 20140316
  Transmission Date: 20141002
  Serious: Yes (Death)
  Sender: FDA-Public Use
  Company Number: US-GE HEALTHCARE MEDICAL DIAGNOSTICS-OSCN-PR-0809S-0547

PATIENT
  Age: 40 Year
  Sex: Female

DRUGS (7)
  1. OMNISCAN [Suspect]
     Indication: PRODUCT USED FOR UNKNOWN INDICATION
     Route: 042
     Dates: start: 20061004, end: 20061004
  2. COUMADIN [Concomitant]
     Dates: start: 20051119
  3. NEURONTIN [Concomitant]
     Dates: start: 20071101
  4. LORTAB [Concomitant]
  5. DURAGESIC [Concomitant]
  6. WELLBUTRIN [Concomitant]
  7. ZOLOFT [Concomitant]

REACTIONS (1)
  - Nephrogenic systemic fibrosis [Fatal]
